FAERS Safety Report 21918383 (Version 2)
Quarter: 2023Q2

REPORT INFORMATION
  Report Type: Report from Study
  Country: DE (occurrence: DE)
  Receive Date: 20230127
  Receipt Date: 20230602
  Transmission Date: 20230722
  Serious: Yes (Other)
  Sender: FDA-Public Use
  Company Number: DE-ABBVIE-4283647

PATIENT
  Age: 64 Year
  Sex: Female

DRUGS (8)
  1. SKYRIZI [Suspect]
     Active Substance: RISANKIZUMAB-RZAA
     Indication: Psoriasis
     Route: 048
     Dates: start: 20191223
  2. SKYRIZI [Suspect]
     Active Substance: RISANKIZUMAB-RZAA
     Route: 048
     Dates: start: 20191128, end: 20191222
  3. CHOLECALCIFEROL [Concomitant]
     Active Substance: CHOLECALCIFEROL
     Indication: Osteoporosis
     Route: 048
     Dates: start: 20191226
  4. TYROSINE [Concomitant]
     Active Substance: TYROSINE
     Indication: Hypothyroidism
     Route: 048
     Dates: start: 19990101
  5. ENOXAPARIN [Concomitant]
     Active Substance: ENOXAPARIN
     Indication: Knee arthroplasty
     Route: 058
     Dates: start: 20221010, end: 20221025
  6. REPEVAX [Concomitant]
     Active Substance: DIPHTHERIA AND TETANUS TOXOIDS AND ACELLULAR PERTUSSIS ADSORBED AND INACTIVATED POLIOVIRUS VACCINE
     Indication: Diphtheria immunisation
     Route: 030
     Dates: start: 20220512, end: 20220512
  7. IBUPROFEN [Concomitant]
     Active Substance: IBUPROFEN
     Indication: Analgesic therapy
     Dosage: FREQUENCY TEXT: THREE TIMES A DAY TO ONCE A DAY
     Route: 048
     Dates: start: 20221010, end: 20221020
  8. ASPIRIN [Concomitant]
     Active Substance: ASPIRIN
     Indication: Knee operation
     Route: 048
     Dates: start: 20180601

REACTIONS (1)
  - Osteoarthritis [Recovered/Resolved]

NARRATIVE: CASE EVENT DATE: 20221010
